FAERS Safety Report 24712140 (Version 3)
Quarter: 2024Q4

REPORT INFORMATION
  Report Type: Spontaneous
  Country: IE (occurrence: IE)
  Receive Date: 20241209
  Receipt Date: 20241218
  Transmission Date: 20250114
  Serious: Yes (Other)
  Sender: PFIZER
  Company Number: IE-ROCHE-10000142455

PATIENT
  Age: 70 Year
  Sex: Male

DRUGS (9)
  1. RITUXIMAB [Suspect]
     Active Substance: RITUXIMAB
     Indication: Diffuse large B-cell lymphoma
     Dosage: 1ST LINE SYSTEMIC TREATMENT RCHOP
     Route: 065
     Dates: start: 20240222, end: 20240524
  2. RITUXIMAB [Suspect]
     Active Substance: RITUXIMAB
     Dosage: 3RD LINE SYSTEMIC TREATMENT
     Route: 065
     Dates: start: 20240920, end: 20241120
  3. VINCRISTINE SULFATE [Suspect]
     Active Substance: VINCRISTINE SULFATE
     Indication: Diffuse large B-cell lymphoma
     Dosage: 1ST LINE SYSTEMIC TREATMENT RCHOP
     Route: 065
     Dates: start: 20240222, end: 20240524
  4. BRENTUXIMAB VEDOTIN [Suspect]
     Active Substance: BRENTUXIMAB VEDOTIN
     Indication: Diffuse large B-cell lymphoma
     Dosage: 2ND LINE SYSTEMIC TREATMENT
     Route: 065
     Dates: start: 20240620, end: 20240824
  5. POLATUZUMAB VEDOTIN [Suspect]
     Active Substance: POLATUZUMAB VEDOTIN
     Indication: Diffuse large B-cell lymphoma
     Dosage: 3RD LINE SYSTEMIC TREATMENT
     Route: 065
     Dates: start: 20240920, end: 20241120
  6. BENDAMUSTINE [Suspect]
     Active Substance: BENDAMUSTINE
     Indication: Diffuse large B-cell lymphoma
     Dosage: 3RD LINE SYSTEMIC TREATMENT
     Route: 065
     Dates: start: 20240920, end: 20241120
  7. CYCLOPHOSPHAMIDE [Suspect]
     Active Substance: CYCLOPHOSPHAMIDE
     Indication: Diffuse large B-cell lymphoma
     Dosage: 1ST LINE SYSTEMIC TREATMENT RCHOP
     Route: 065
     Dates: start: 20240222, end: 20240524
  8. DOXORUBICIN [Suspect]
     Active Substance: DOXORUBICIN
     Indication: Diffuse large B-cell lymphoma
     Dosage: 1ST LINE SYSTEMIC TREATMENT RCHOP
     Route: 065
     Dates: start: 20240222, end: 20240524
  9. PREDNISONE [Suspect]
     Active Substance: PREDNISONE
     Indication: Diffuse large B-cell lymphoma
     Dosage: 1ST LINE SYSTEMIC TREATMENT RCHOP
     Route: 065
     Dates: start: 20240222, end: 20240524

REACTIONS (1)
  - Neoplasm progression [Unknown]
